FAERS Safety Report 19476593 (Version 2)
Quarter: 2021Q3

REPORT INFORMATION
  Report Type: Report from Study
  Country: IT (occurrence: IT)
  Receive Date: 20210630
  Receipt Date: 20210706
  Transmission Date: 20211014
  Serious: Yes (Hospitalization)
  Sender: FDA-Public Use
  Company Number: IT-ROCHE-2858537

PATIENT
  Age: 37 Year
  Sex: Male
  Weight: 52 kg

DRUGS (4)
  1. VEMURAFENIB. [Suspect]
     Active Substance: VEMURAFENIB
     Dosage: PATIENT RESUMES THERAPY AT REDUCED DOSE (3 TABLET/TWICE A DAY)
     Route: 048
     Dates: start: 20210630
  2. VEMURAFENIB. [Suspect]
     Active Substance: VEMURAFENIB
     Indication: MALIGNANT MELANOMA
     Dosage: DATE OF LAST DOSE PRIOR TO ONSET OF SERIOUS ADVERSE EVENT ON 20/JUN/2021.
     Route: 048
     Dates: start: 20210610, end: 20210621
  3. COBIMETINIB. [Suspect]
     Active Substance: COBIMETINIB
     Dosage: PATIENT RESUMES THERAPY AT REDUCED DOSE (2 TABLET/ONCE A DAY)
     Route: 048
     Dates: start: 20210630
  4. COBIMETINIB. [Suspect]
     Active Substance: COBIMETINIB
     Indication: MALIGNANT MELANOMA
     Dosage: DATE OF LAST DOSE PRIOR TO ONSET OF SERIOUS ADVERSE EVENT ON 20/JUN/2021.
     Route: 048
     Dates: start: 20210610, end: 20210621

REACTIONS (3)
  - Toxicity to various agents [Recovered/Resolved with Sequelae]
  - Pyrexia [Recovered/Resolved with Sequelae]
  - Skin toxicity [Recovered/Resolved with Sequelae]

NARRATIVE: CASE EVENT DATE: 20210618
